FAERS Safety Report 9835844 (Version 1)
Quarter: 2014Q1

REPORT INFORMATION
  Report Type: Report from Study
  Country: ES (occurrence: ES)
  Receive Date: 20140122
  Receipt Date: 20140122
  Transmission Date: 20141002
  Serious: Yes (Hospitalization)
  Sender: FDA-Public Use
  Company Number: PHHY2014ES007165

PATIENT
  Age: 43 Year
  Sex: Male
  Weight: 65.8 kg

DRUGS (11)
  1. MYFORTIC [Suspect]
     Indication: IMMUNOSUPPRESSION
     Dosage: 540 MG, DAILY
     Route: 048
     Dates: start: 20110427, end: 20110429
  2. MYFORTIC [Interacting]
     Dosage: UNK UKN, UNK
     Dates: start: 20110510
  3. TACROLIMUS [Interacting]
     Indication: PROPHYLAXIS AGAINST TRANSPLANT REJECTION
     Dosage: 12.5 MG, QD
     Dates: start: 20110413, end: 20110430
  4. TACROLIMUS [Interacting]
     Dosage: 13 MG, QD
     Route: 048
     Dates: start: 20110501, end: 20110502
  5. TACROLIMUS [Interacting]
     Dosage: 12 MG, QD
     Route: 048
     Dates: start: 20110503, end: 20110510
  6. TACROLIMUS [Interacting]
     Dosage: 13 MG, QD
     Route: 048
     Dates: start: 20110511, end: 20110610
  7. TACROLIMUS [Interacting]
     Dosage: 7 MG, QD
     Route: 048
     Dates: start: 20110611, end: 20110616
  8. TACROLIMUS [Interacting]
     Dosage: UNK UKN, UNK
  9. PREDNISONE [Concomitant]
     Indication: IMMUNOSUPPRESSION
     Dosage: 7.5 MG, DAILY
     Dates: start: 20110323
  10. ATORVASTATIN [Concomitant]
     Indication: LIPIDS INCREASED
     Dosage: 20 MG, DAILY
     Route: 048
     Dates: start: 20110308
  11. BISOPROLOL FUMARATE [Concomitant]
     Indication: HYPERTENSION
     Dosage: 5 MG, DAILY
     Route: 048
     Dates: start: 20110205

REACTIONS (4)
  - Leukopenia [Recovered/Resolved]
  - White blood cell count decreased [Recovered/Resolved]
  - Pyrexia [Recovered/Resolved]
  - Drug interaction [Recovered/Resolved]
